FAERS Safety Report 24529667 (Version 1)
Quarter: 2024Q4

REPORT INFORMATION
  Report Type: Other
  Country: FR (occurrence: FR)
  Receive Date: 20241021
  Receipt Date: 20241021
  Transmission Date: 20250115
  Serious: Yes (Life-Threatening, Hospitalization)
  Sender: AIR PRODUCTS
  Company Number: FR-Air Products and Chemicals-2163463

PATIENT
  Age: 96 Year
  Sex: Female

DRUGS (1)
  1. OXYGEN [Suspect]
     Active Substance: OXYGEN
     Indication: Chronic respiratory failure

REACTIONS (3)
  - Cyanosis [Unknown]
  - Hypercapnia [Unknown]
  - Hypoxia [Unknown]
